FAERS Safety Report 18673136 (Version 1)
Quarter: 2020Q4

REPORT INFORMATION
  Report Type: Spontaneous
  Country: FR (occurrence: FR)
  Receive Date: 20201228
  Receipt Date: 20201228
  Transmission Date: 20210114
  Serious: Yes (Hospitalization)
  Sender: FDA-Public Use
  Company Number: FR-MYLANLABS-2020M1103953

PATIENT
  Age: 59 Year
  Sex: Male
  Weight: 84.5 kg

DRUGS (14)
  1. PROPOFOL LIPURO [Suspect]
     Active Substance: PROPOFOL
     Indication: ANAESTHESIA
     Dosage: 150 MILLIGRAM, QD
     Route: 042
     Dates: start: 20201119, end: 20201119
  2. MIDAZOLAM MYLAN [Suspect]
     Active Substance: MIDAZOLAM HYDROCHLORIDE
     Indication: ANAESTHESIA
     Dosage: 2 MILLIGRAM, QD
     Route: 042
     Dates: start: 20201119, end: 20201119
  3. ROPIVACAINE KABI [Suspect]
     Active Substance: ROPIVACAINE
     Indication: PAIN
     Dosage: UNK
     Route: 042
     Dates: start: 20201119, end: 20201124
  4. SUFENTANIL MYLAN [Suspect]
     Active Substance: SUFENTANIL
     Indication: ANAESTHESIA
     Dosage: 35 MICROGRAM, QD
     Route: 042
     Dates: start: 20201119, end: 20201119
  5. MORPHINE [Suspect]
     Active Substance: MORPHINE
     Indication: PAIN
     Dosage: UNK
     Route: 042
     Dates: start: 20201120, end: 20201124
  6. PANTOPRAZOLE [Concomitant]
     Active Substance: PANTOPRAZOLE
     Dosage: UNK
  7. TOPALGIC                           /00599202/ [Suspect]
     Active Substance: TRAMADOL HYDROCHLORIDE
     Indication: PAIN
     Dosage: UNK
     Route: 042
     Dates: start: 20201119, end: 20201124
  8. CISATRACURIUM MYLAN [Suspect]
     Active Substance: CISATRACURIUM
     Indication: ANAESTHESIA
     Dosage: 20 MILLIGRAM, QD
     Route: 042
     Dates: start: 20201119, end: 20201119
  9. LIDOCAINE ADRENALINE AGUETTANT [Suspect]
     Active Substance: EPINEPHRINE\LIDOCAINE
     Indication: ANAESTHESIA
     Dosage: 200 MILLIGRAM, QD
     Route: 042
     Dates: start: 20201119, end: 20201119
  10. LOVENOX [Concomitant]
     Active Substance: ENOXAPARIN SODIUM
     Dosage: UNK
  11. ONDANSETRON [Concomitant]
     Active Substance: ONDANSETRON
     Dosage: UNK
  12. NEFOPAM MYLAN 20 MG/2 ML, SOLUTION INJECTABLE [Suspect]
     Active Substance: NEFOPAM HYDROCHLORIDE
     Indication: PAIN
     Dosage: UNK
     Route: 042
     Dates: start: 20201119, end: 20201124
  13. XYLOCARD [Suspect]
     Active Substance: LIDOCAINE HYDROCHLORIDE
     Indication: ANAESTHESIA
     Dosage: UNK
     Route: 042
     Dates: start: 20201119, end: 20201119
  14. KETAMINE RENAUDIN [Suspect]
     Active Substance: KETAMINE
     Indication: ANAESTHESIA
     Dosage: 50 MILLIGRAM, QD
     Route: 042
     Dates: start: 20201119, end: 20201119

REACTIONS (2)
  - Gastrointestinal motility disorder [Recovered/Resolved]
  - Subileus [Recovered/Resolved]

NARRATIVE: CASE EVENT DATE: 20201120
